FAERS Safety Report 9684818 (Version 5)
Quarter: 2014Q2

REPORT INFORMATION
  Report Type: Spontaneous
  Country: FR (occurrence: FR)
  Receive Date: 20131112
  Receipt Date: 20140410
  Transmission Date: 20141212
  Serious: Yes (Life-Threatening, Hospitalization, Other)
  Sender: FDA-Public Use
  Company Number: PHHY2013FR127353

PATIENT
  Age: 55 Year
  Sex: Female

DRUGS (6)
  1. GILENYA [Suspect]
     Indication: MULTIPLE SCLEROSIS
     Dosage: 0.5 MG, QD
     Route: 048
     Dates: start: 20130729, end: 20131104
  2. ENDOXAN [Suspect]
  3. MANTADIX [Concomitant]
     Indication: ASTHENIA
     Dosage: 200 MG, UNK
     Route: 048
     Dates: start: 2007, end: 20131204
  4. MAGNE B6 [Concomitant]
     Indication: ASTHENIA
     Dosage: 2 DF, QD
     Route: 048
     Dates: start: 2007, end: 20131204
  5. EFFERALGAN [Concomitant]
  6. VESICARE [Concomitant]
     Indication: POLLAKIURIA
     Dosage: 2 DF, QD
     Route: 048
     Dates: start: 20111106

REACTIONS (11)
  - Haemorrhagic stroke [Recovering/Resolving]
  - Cerebral haemorrhage [Not Recovered/Not Resolved]
  - Hemiplegia [Recovered/Resolved with Sequelae]
  - Aphasia [Recovered/Resolved with Sequelae]
  - Cerebral haematoma [Recovered/Resolved with Sequelae]
  - Hypertension [Recovering/Resolving]
  - Paraparesis [Unknown]
  - Aspergilloma [Recovered/Resolved]
  - Hypotension [Unknown]
  - Stress [Unknown]
  - Lymphocyte count decreased [Unknown]
